FAERS Safety Report 6871859-3 (Version None)
Quarter: 2010Q3

REPORT INFORMATION
  Report Type: 
  Country: None (occurrence: None)
  Receive Date: 20100723
  Receipt Date: 20100714
  Transmission Date: 20110219
  Serious: Yes (Hospitalization, Disabling, Other)
  Sender: FDA-Public Use
  Company Number: US-PFIZER INC-2010088770

PATIENT
  Sex: Male
  Weight: 104 kg

DRUGS (8)
  1. LIPITOR [Suspect]
     Indication: BLOOD CHOLESTEROL INCREASED
     Dosage: 20 MG, DAILY
     Route: 048
  2. RITUXAN [Suspect]
     Indication: NON-HODGKIN'S LYMPHOMA
     Dosage: UNK
     Dates: start: 20081201, end: 20091120
  3. AMITRIPTYLINE [Concomitant]
     Indication: ANXIETY
     Dosage: 20 MG, DAILY
  4. AMITRIPTYLINE [Concomitant]
     Indication: DEPRESSION
  5. PROZAC [Concomitant]
     Indication: ANXIETY
     Dosage: 20 MG, DAILY
  6. PROZAC [Concomitant]
     Indication: DEPRESSION
  7. EFFEXOR [Concomitant]
     Indication: ANXIETY
     Dosage: 37.5 MG, DAILY
  8. EFFEXOR [Concomitant]
     Indication: DEPRESSION

REACTIONS (7)
  - ANXIETY [None]
  - DRUG INEFFECTIVE [None]
  - NEOPLASM PROGRESSION [None]
  - NON-HODGKIN'S LYMPHOMA [None]
  - PNEUMONIA [None]
  - PYREXIA [None]
  - RENAL ONCOCYTOMA [None]
